FAERS Safety Report 9171601 (Version 2)
Quarter: 2013Q2

REPORT INFORMATION
  Report Type: Other
  Country: GB (occurrence: GB)
  Receive Date: 20130319
  Receipt Date: 20130628
  Transmission Date: 20140414
  Serious: Yes (Hospitalization)
  Sender: FDA-Public Use
  Company Number: GB-WATSON-2013-03854

PATIENT
  Sex: Female

DRUGS (18)
  1. RAMIPRIL (UNKNOWN) [Suspect]
     Indication: PRODUCT USED FOR UNKNOWN INDICATION
     Dosage: UNK
     Route: 065
     Dates: end: 20130108
  2. PHYSIONEAL [Suspect]
     Indication: PERITONEAL DIALYSIS
     Dosage: UNK
     Route: 033
  3. PHYSIONEAL [Suspect]
     Dosage: UNK
     Route: 033
  4. EXTRANEAL [Suspect]
     Indication: PERITONEAL DIALYSIS
     Dosage: UNK
     Route: 033
  5. DOXYCIN [Suspect]
     Indication: PRODUCT USED FOR UNKNOWN INDICATION
     Dosage: UNK
     Route: 065
     Dates: end: 20130108
  6. SALBUTAMOL [Concomitant]
     Indication: ASTHMA
     Dosage: 2 PUFFS
     Route: 055
     Dates: start: 20130108, end: 20130118
  7. SERETIDE [Concomitant]
     Indication: ASTHMA
     Dosage: 250 MG, DAILY 2 PUFFS.
     Route: 055
     Dates: start: 20130108, end: 20130118
  8. BISOPROLOL [Concomitant]
     Indication: PRODUCT USED FOR UNKNOWN INDICATION
     Dosage: 10 MG, UNKNOWN
     Route: 048
     Dates: start: 20130108, end: 20130118
  9. CINACALCET [Concomitant]
     Indication: PRODUCT USED FOR UNKNOWN INDICATION
     Dosage: 30 MG, BID
     Route: 048
     Dates: start: 20130108, end: 20130118
  10. CLOPIDOGREL [Concomitant]
     Indication: PRODUCT USED FOR UNKNOWN INDICATION
     Dosage: 75 MG, UNKNOWN
     Route: 065
     Dates: start: 20130108, end: 20130118
  11. ROSUVASTATIN [Concomitant]
     Indication: PRODUCT USED FOR UNKNOWN INDICATION
     Dosage: 20 MG, UNKNOWN
     Route: 065
     Dates: start: 20130108, end: 20130118
  12. ALFACALCIDOL [Concomitant]
     Indication: PRODUCT USED FOR UNKNOWN INDICATION
     Dosage: 0.5 MG, UNKNOWN
     Route: 065
     Dates: start: 20130108, end: 20130118
  13. SEVELAMER [Concomitant]
     Indication: PRODUCT USED FOR UNKNOWN INDICATION
     Dosage: 800 MG, UNKNOWN
     Route: 065
     Dates: start: 20130108, end: 20130118
  14. EPREX [Concomitant]
     Indication: PRODUCT USED FOR UNKNOWN INDICATION
     Dosage: 4000ML
     Route: 065
     Dates: start: 20130108, end: 20130118
  15. LACTULOSE [Concomitant]
     Indication: PRODUCT USED FOR UNKNOWN INDICATION
     Dosage: 10 MG, UNKNOWN
     Route: 065
     Dates: start: 20130108, end: 20130118
  16. HUMULIN                            /00646003/ [Concomitant]
     Indication: PRODUCT USED FOR UNKNOWN INDICATION
     Dosage: 24 UNITS
     Route: 065
     Dates: start: 20130108, end: 20130118
  17. HUMULIN S [Concomitant]
     Indication: PRODUCT USED FOR UNKNOWN INDICATION
     Dosage: 100 UNIT CARTRIDGE/ 12 UNITS
     Route: 065
     Dates: start: 20130108, end: 20130118
  18. LEVOTHYROXINE [Concomitant]
     Indication: PRODUCT USED FOR UNKNOWN INDICATION
     Dosage: 75MG
     Route: 065
     Dates: start: 20130108, end: 20130118

REACTIONS (3)
  - Lower respiratory tract infection [Unknown]
  - Asthma [Unknown]
  - Blood pressure decreased [Recovered/Resolved]
